FAERS Safety Report 4423062-4 (Version None)
Quarter: 2004Q3

REPORT INFORMATION
  Report Type: 
  Country: None (occurrence: None)
  Receive Date: 20040806
  Receipt Date: 20040721
  Transmission Date: 20050211
  Serious: Yes (Death)
  Sender: FDA-Public Use
  Company Number: USA040773244

PATIENT
  Age: 72 Year
  Sex: Female

DRUGS (4)
  1. ZYPREXA [Suspect]
     Indication: DEPRESSION
     Dosage: 10 MG DAY
     Dates: start: 20011101, end: 20040105
  2. LANOXIN [Concomitant]
  3. NAPROSYN (NAPROXEN MEPHA) [Concomitant]
  4. TYLENOL [Concomitant]

REACTIONS (1)
  - DEATH [None]
